FAERS Safety Report 16076313 (Version 3)
Quarter: 2022Q4

REPORT INFORMATION
  Report Type: Spontaneous
  Country: US (occurrence: US)
  Receive Date: 20190315
  Receipt Date: 20221114
  Transmission Date: 20230113
  Serious: No
  Sender: FDA-Public Use
  Company Number: US-PFIZER INC-2019105534

PATIENT
  Age: 57 Year
  Sex: Female
  Weight: 117.9 kg

DRUGS (1)
  1. XELJANZ [Suspect]
     Active Substance: TOFACITINIB CITRATE
     Indication: Rheumatoid arthritis
     Dosage: 5 MG, 2X/DAY
     Route: 048
     Dates: end: 201902

REACTIONS (3)
  - Cough [Recovering/Resolving]
  - Ear infection [Recovered/Resolved]
  - Bronchitis [Recovered/Resolved with Sequelae]
